FAERS Safety Report 25547403 (Version 1)
Quarter: 2025Q3

REPORT INFORMATION
  Report Type: Report from Study
  Country: JP (occurrence: JP)
  Receive Date: 20250714
  Receipt Date: 20250714
  Transmission Date: 20251020
  Serious: Yes (Other)
  Sender: BRISTOL-MYERS SQUIBB COMPANY
  Company Number: JP-BRISTOL-MYERS SQUIBB COMPANY-2025-095087

PATIENT
  Age: 74 Year
  Sex: Male
  Weight: 51.8 kg

DRUGS (3)
  1. BREYANZI [Suspect]
     Active Substance: LISOCABTAGENE MARALEUCEL
     Indication: Diffuse large B-cell lymphoma
     Route: 041
     Dates: start: 20241016, end: 20241016
  2. FLUDARABINE [Concomitant]
     Active Substance: FLUDARABINE PHOSPHATE
     Indication: Diffuse large B-cell lymphoma
     Dates: start: 20241011
  3. CYCLOPHOSPHAMIDE [Concomitant]
     Active Substance: CYCLOPHOSPHAMIDE
     Indication: Diffuse large B-cell lymphoma
     Dates: start: 20241011

REACTIONS (6)
  - Cytokine release syndrome [Recovered/Resolved]
  - Cerebral infarction [Recovered/Resolved]
  - Cytomegalovirus viraemia [Unknown]
  - Urinary tract infection [Unknown]
  - Hypogammaglobulinaemia [Not Recovered/Not Resolved]
  - Viral infection [Unknown]

NARRATIVE: CASE EVENT DATE: 20241017
